FAERS Safety Report 25921718 (Version 1)
Quarter: 2025Q4

REPORT INFORMATION
  Report Type: Spontaneous
  Country: US (occurrence: US)
  Receive Date: 20251014
  Receipt Date: 20251014
  Transmission Date: 20260119
  Serious: No
  Sender: Kenvue
  Company Number: US-KENVUE-20250907874

PATIENT
  Sex: Female
  Weight: 12.247 kg

DRUGS (1)
  1. MOTRIN INFANTS [Suspect]
     Active Substance: IBUPROFEN
     Indication: Accidental exposure to product
     Dosage: UNK, AS NEEDED
     Route: 048
     Dates: start: 2025

REACTIONS (2)
  - Accidental exposure to product [Unknown]
  - Failure of child resistant product closure [Unknown]

NARRATIVE: CASE EVENT DATE: 20250101
